FAERS Safety Report 13987736 (Version 1)
Quarter: 2017Q3

REPORT INFORMATION
  Report Type: Report from Study
  Country: US (occurrence: US)
  Receive Date: 20170919
  Receipt Date: 20170919
  Transmission Date: 20171128
  Serious: Yes (Hospitalization, Other)
  Sender: FDA-Public Use
  Company Number: US-EMD SERONO-7120615

PATIENT
  Sex: Male

DRUGS (4)
  1. HYDROCORTISON                      /00028601/ [Concomitant]
     Active Substance: HYDROCORTISONE
     Indication: PRODUCT USED FOR UNKNOWN INDICATION
  2. SEROSTIM [Suspect]
     Active Substance: SOMATROPIN
     Indication: CACHEXIA
     Route: 058
     Dates: start: 2009
  3. SEROSTIM [Suspect]
     Active Substance: SOMATROPIN
     Indication: HIV WASTING SYNDROME
     Route: 058
     Dates: start: 20071206
  4. SEROSTIM [Suspect]
     Active Substance: SOMATROPIN
     Route: 058
     Dates: start: 20120201

REACTIONS (12)
  - Gallbladder disorder [Recovered/Resolved]
  - Lower respiratory tract infection [Recovering/Resolving]
  - Appendicitis perforated [Recovered/Resolved]
  - Drug interaction [Unknown]
  - Gallbladder perforation [Unknown]
  - Arthralgia [Unknown]
  - Bile duct obstruction [Recovered/Resolved]
  - Ligament rupture [Unknown]
  - Bone development abnormal [Unknown]
  - Cholelithiasis [Unknown]
  - Procedural complication [Recovered/Resolved]
  - Arthropathy [Unknown]

NARRATIVE: CASE EVENT DATE: 2011
